FAERS Safety Report 8799555 (Version 2)
Quarter: 2012Q4

REPORT INFORMATION
  Report Type: 
  Country: US (occurrence: US)
  Receive Date: 20120919
  Receipt Date: 20121011
  Transmission Date: 20130627
  Serious: No
  Sender: FDA-Public Use
  Company Number: US-PFIZER INC-2012230611

PATIENT
  Sex: Female

DRUGS (2)
  1. GEODON [Suspect]
     Indication: ABNORMAL BEHAVIOUR
     Dosage: 20 mg, 1x/day
     Route: 048
     Dates: start: 201207
  2. NORVASC [Suspect]
     Indication: HYPERTENSION
     Dosage: UNK, every other day

REACTIONS (2)
  - Wrong technique in drug usage process [Unknown]
  - Chest pain [Recovered/Resolved]
